APPROVED DRUG PRODUCT: METHADONE HYDROCHLORIDE
Active Ingredient: METHADONE HYDROCHLORIDE
Strength: 50GM/BOT
Dosage Form/Route: POWDER;FOR RX COMPOUNDING
Application: N006383 | Product #002
Applicant: MALLINCKRODT INC
Approved: Approved Prior to Jan 1, 1982 | RLD: No | RS: No | Type: DISCN